FAERS Safety Report 8797671 (Version 31)
Quarter: 2015Q2

REPORT INFORMATION
  Report Type: Report from Study
  Country: CA (occurrence: CA)
  Receive Date: 20120919
  Receipt Date: 20150513
  Transmission Date: 20150821
  Serious: Yes (Other)
  Sender: FDA-Public Use
  Company Number: CA-ROCHE-1123846

PATIENT
  Age: 57 Year
  Sex: Female
  Weight: 52 kg

DRUGS (17)
  1. ACTEMRA [Suspect]
     Active Substance: TOCILIZUMAB
     Indication: RHEUMATOID ARTHRITIS
     Route: 042
     Dates: start: 20110411
  2. ACTEMRA [Suspect]
     Active Substance: TOCILIZUMAB
     Route: 042
     Dates: start: 20130916
  3. ACTEMRA [Suspect]
     Active Substance: TOCILIZUMAB
     Route: 042
     Dates: start: 20140730
  4. OXAZEPAM. [Concomitant]
     Active Substance: OXAZEPAM
  5. ACTEMRA [Suspect]
     Active Substance: TOCILIZUMAB
     Route: 042
     Dates: start: 20111122
  6. SULFASALAZINE. [Concomitant]
     Active Substance: SULFASALAZINE
  7. METFORMIN [Concomitant]
     Active Substance: METFORMIN HYDROCHLORIDE
  8. ACTEMRA [Suspect]
     Active Substance: TOCILIZUMAB
     Route: 042
     Dates: start: 20110509
  9. RITUXAN [Suspect]
     Active Substance: RITUXIMAB
     Indication: PRODUCT USED FOR UNKNOWN INDICATION
     Route: 065
  10. EFFEXOR [Concomitant]
     Active Substance: VENLAFAXINE HYDROCHLORIDE
  11. PANTOLOC [Concomitant]
     Active Substance: PANTOPRAZOLE SODIUM
  12. CHLORAL HYDRATE [Concomitant]
     Active Substance: CHLORAL HYDRATE
  13. THYROXIN [Concomitant]
     Active Substance: LEVOTHYROXINE
  14. CODEINE [Concomitant]
     Active Substance: CODEINE
     Indication: PAIN
     Route: 048
  15. LOPRESSOR [Concomitant]
     Active Substance: METOPROLOL TARTRATE
  16. ACTEMRA [Suspect]
     Active Substance: TOCILIZUMAB
     Route: 042
     Dates: start: 20130111
  17. ACTEMRA [Suspect]
     Active Substance: TOCILIZUMAB
     Route: 042
     Dates: start: 20140403

REACTIONS (17)
  - Heart rate decreased [Unknown]
  - Cerebrovascular accident [Unknown]
  - Arthralgia [Not Recovered/Not Resolved]
  - Weight decreased [Not Recovered/Not Resolved]
  - Stress [Unknown]
  - Ulcer [Not Recovered/Not Resolved]
  - Hypoaesthesia [Not Recovered/Not Resolved]
  - Vulvovaginal mycotic infection [Recovered/Resolved]
  - Infusion related reaction [Unknown]
  - Joint swelling [Unknown]
  - Melanocytic naevus [Unknown]
  - Vulvovaginal discomfort [Recovered/Resolved]
  - Emotional distress [Unknown]
  - Rheumatoid arthritis [Not Recovered/Not Resolved]
  - Peroneal nerve palsy [Not Recovered/Not Resolved]
  - Hypertension [Unknown]
  - Nasopharyngitis [Not Recovered/Not Resolved]

NARRATIVE: CASE EVENT DATE: 20120522
